FAERS Safety Report 21054444 (Version 1)
Quarter: 2022Q3

REPORT INFORMATION
  Report Type: Spontaneous
  Country: US (occurrence: US)
  Receive Date: 20220707
  Receipt Date: 20220707
  Transmission Date: 20221026
  Serious: Yes (Hospitalization)
  Sender: FDA-Public Use
  Company Number: US-TEVA-2022-US-2052351

PATIENT
  Age: 34 Year
  Sex: Female

DRUGS (16)
  1. VALPROATE [Interacting]
     Active Substance: VALPROIC ACID
     Indication: Mood altered
     Dosage: 500 MILLIGRAM DAILY;
     Route: 065
  2. VALPROATE [Interacting]
     Active Substance: VALPROIC ACID
     Indication: Seizure prophylaxis
     Dosage: 1000 MILLIGRAM DAILY;
     Route: 065
  3. CLOZAPINE [Interacting]
     Active Substance: CLOZAPINE
     Indication: Schizoaffective disorder
     Dosage: 25 MILLIGRAM DAILY;
     Route: 065
  4. CLOZAPINE [Interacting]
     Active Substance: CLOZAPINE
     Dosage: 50 MILLIGRAM DAILY;
     Route: 065
  5. CLOZAPINE [Interacting]
     Active Substance: CLOZAPINE
     Dosage: 75 MILLIGRAM DAILY;
     Route: 065
  6. CLOZAPINE [Interacting]
     Active Substance: CLOZAPINE
     Dosage: 100 MILLIGRAM DAILY;
     Route: 065
  7. CLOZAPINE [Interacting]
     Active Substance: CLOZAPINE
     Dosage: 150 MILLIGRAM DAILY;
     Route: 065
  8. OMEPRAZOLE [Concomitant]
     Active Substance: OMEPRAZOLE
     Indication: Product used for unknown indication
     Dosage: 40 MILLIGRAM DAILY;
     Route: 065
  9. MELATONIN [Concomitant]
     Active Substance: MELATONIN
     Indication: Product used for unknown indication
     Dosage: 10 MILLIGRAM DAILY;
     Route: 065
  10. ENOXAPARIN [Concomitant]
     Active Substance: ENOXAPARIN
     Indication: Product used for unknown indication
     Dosage: 40 MILLIGRAM DAILY;
     Route: 058
  11. IBUPROFEN [Concomitant]
     Active Substance: IBUPROFEN
     Indication: Pain
     Dosage: 400 MILLIGRAM DAILY;
     Route: 065
  12. ONDANSETRON [Concomitant]
     Active Substance: ONDANSETRON
     Indication: Nausea
     Dosage: 8 MILLIGRAM DAILY;
     Route: 065
  13. ZIPRASIDONE [Concomitant]
     Active Substance: ZIPRASIDONE
     Indication: Schizoaffective disorder
     Dosage: 160 MILLIGRAM DAILY;
     Route: 065
  14. ZIPRASIDONE [Concomitant]
     Active Substance: ZIPRASIDONE
     Dosage: 120 MILLIGRAM DAILY;
     Route: 065
  15. ZIPRASIDONE [Concomitant]
     Active Substance: ZIPRASIDONE
     Dosage: 80 MILLIGRAM DAILY;
     Route: 065
  16. ZIPRASIDONE [Concomitant]
     Active Substance: ZIPRASIDONE
     Dosage: 60 MILLIGRAM DAILY;
     Route: 065

REACTIONS (2)
  - Myocarditis [Recovering/Resolving]
  - Drug interaction [Unknown]
